FAERS Safety Report 7585440-4 (Version None)
Quarter: 2011Q3

REPORT INFORMATION
  Report Type: 
  Country: None (occurrence: None)
  Receive Date: 20110701
  Receipt Date: 20110615
  Transmission Date: 20111222
  Serious: Yes (Hospitalization, Other)
  Sender: FDA-Public Use
  Company Number: US-BAYER-201030384NA

PATIENT
  Age: 31 Year
  Sex: Female
  Weight: 87.528 kg

DRUGS (6)
  1. YAZ [Suspect]
     Indication: PREMENSTRUAL SYNDROME
     Dosage: UNK UNK, QD
     Route: 048
     Dates: start: 20090305, end: 20100317
  2. ALEVE-D SINUS + COLD [Concomitant]
     Dosage: UNK UNK, PRN
     Route: 048
  3. ZYRTEC [Concomitant]
     Route: 048
  4. PERCOCET [Concomitant]
  5. PROZAC [Concomitant]
     Route: 048
  6. YAZ [Suspect]

REACTIONS (6)
  - FOOD INTOLERANCE [None]
  - NAUSEA [None]
  - VOMITING [None]
  - ABDOMINAL PAIN UPPER [None]
  - BILIARY DYSKINESIA [None]
  - DIARRHOEA [None]
